FAERS Safety Report 9837473 (Version 1)
Quarter: 2014Q1

REPORT INFORMATION
  Report Type: Spontaneous
  Country: AR (occurrence: AR)
  Receive Date: 20140123
  Receipt Date: 20140123
  Transmission Date: 20141002
  Serious: Yes (Other)
  Sender: FDA-Public Use
  Company Number: AR-AMGEN-ARGSP2014003608

PATIENT
  Age: 43 Year
  Sex: Female

DRUGS (3)
  1. ENBREL [Suspect]
     Indication: RHEUMATOID ARTHRITIS
     Dosage: 50 MG, WEEKLY
     Route: 058
     Dates: start: 20130626
  2. NAPROXEN [Concomitant]
     Dosage: UNK
  3. SULFADIAZINE [Concomitant]
     Indication: RHEUMATOID ARTHRITIS
     Dosage: 2 DF, 1X/DAY

REACTIONS (1)
  - Haemorrhage [Not Recovered/Not Resolved]
